FAERS Safety Report 11239680 (Version 1)
Quarter: 2015Q3

REPORT INFORMATION
  Report Type: Spontaneous
  Country: US (occurrence: None)
  Receive Date: 20150701
  Receipt Date: 20150701
  Transmission Date: 20151125
  Serious: No
  Sender: FDA-Public Use
  Company Number: None

PATIENT
  Age: 48 Year
  Sex: Female
  Weight: 77.11 kg

DRUGS (11)
  1. ZYRTEC [Concomitant]
     Active Substance: CETIRIZINE HYDROCHLORIDE
  2. COQ10 [Concomitant]
     Active Substance: UBIDECARENONE
  3. QVAR [Concomitant]
     Active Substance: BECLOMETHASONE DIPROPIONATE
  4. OMEGA XL [Concomitant]
     Active Substance: DIETARY SUPPLEMENT
  5. VITAMIN D [Concomitant]
     Active Substance: CHOLECALCIFEROL
  6. MONTELUKAST SODIUM 10MG [Suspect]
     Active Substance: MONTELUKAST SODIUM
     Indication: APHONIA
     Dosage: ONE PILL
     Route: 048
     Dates: start: 20150630, end: 20150630
  7. FOLIC ACID. [Concomitant]
     Active Substance: FOLIC ACID
  8. B12 SHOT [Concomitant]
  9. MONTELUKAST SODIUM 10MG [Suspect]
     Active Substance: MONTELUKAST SODIUM
     Indication: ASTHMA
     Dosage: ONE PILL
     Route: 048
     Dates: start: 20150630, end: 20150630
  10. MONTELUKAST SODIUM 10MG [Suspect]
     Active Substance: MONTELUKAST SODIUM
     Indication: HYPERSENSITIVITY
     Dosage: ONE PILL
     Route: 048
     Dates: start: 20150630, end: 20150630
  11. MONTELUKAST SODIUM 10MG [Suspect]
     Active Substance: MONTELUKAST SODIUM
     Indication: DYSPNOEA
     Dosage: ONE PILL
     Route: 048
     Dates: start: 20150630, end: 20150630

REACTIONS (8)
  - Diarrhoea [None]
  - Vomiting [None]
  - Abdominal pain [None]
  - Dyspnoea [None]
  - Wheezing [None]
  - Abdominal pain upper [None]
  - Retching [None]
  - Product taste abnormal [None]

NARRATIVE: CASE EVENT DATE: 20150630
